FAERS Safety Report 16458102 (Version 1)
Quarter: 2019Q3

REPORT INFORMATION
  Report Type: Spontaneous
  Country: US (occurrence: US)
  Receive Date: 20190619
  Receipt Date: 20190619
  Transmission Date: 20191004
  Serious: Yes (Hospitalization)
  Sender: FDA-Public Use
  Company Number: None

PATIENT
  Age: 41 Year
  Sex: Female

DRUGS (2)
  1. HUMIRA [Suspect]
     Active Substance: ADALIMUMAB
     Indication: CROHN^S DISEASE
     Route: 058
     Dates: start: 20190328
  2. MESALAMINE. [Suspect]
     Active Substance: MESALAMINE

REACTIONS (2)
  - Anastomotic complication [None]
  - Intestinal anastomosis [None]

NARRATIVE: CASE EVENT DATE: 20190605
